FAERS Safety Report 5818633-4 (Version None)
Quarter: 2008Q3

REPORT INFORMATION
  Report Type: 
  Country: None (occurrence: None)
  Receive Date: 20080723
  Receipt Date: 20080715
  Transmission Date: 20090109
  Serious: Yes (Hospitalization)
  Sender: FDA-Public Use
  Company Number: US-ELI_LILLY_AND_COMPANY-US200807003255

PATIENT
  Sex: Male

DRUGS (3)
  1. HUMALOG [Suspect]
     Indication: DIABETES MELLITUS
     Dates: start: 19910101, end: 20080708
  2. HUMULIN 70/30 [Suspect]
     Indication: DIABETES MELLITUS
     Dates: start: 19980101, end: 20080601
  3. HUMULIN 70/30 [Suspect]
     Dates: start: 20080610

REACTIONS (7)
  - BLOOD GLUCOSE FLUCTUATION [None]
  - COLLAPSE OF LUNG [None]
  - KNEE OPERATION [None]
  - MUSCULOSKELETAL DISCOMFORT [None]
  - MYOCARDIAL INFARCTION [None]
  - PRURITUS [None]
  - RASH [None]
